FAERS Safety Report 12851132 (Version 3)
Quarter: 2017Q3

REPORT INFORMATION
  Report Type: Report from Study
  Country: GB (occurrence: GB)
  Receive Date: 20161015
  Receipt Date: 20170731
  Transmission Date: 20171127
  Serious: Yes (Hospitalization, Other)
  Sender: FDA-Public Use
  Company Number: GB-AMGEN-GBRSL2016139250

PATIENT
  Age: 69 Year
  Sex: Male

DRUGS (2)
  1. IRON [Concomitant]
     Active Substance: IRON
     Dosage: UNK
  2. ARANESP [Suspect]
     Active Substance: DARBEPOETIN ALFA
     Indication: PRODUCT USED FOR UNKNOWN INDICATION
     Dosage: 20 MUG, UNK
     Route: 065

REACTIONS (7)
  - Haemodialysis [Unknown]
  - Bladder irrigation [Unknown]
  - Mineral supplementation [Unknown]
  - Prostatic operation [Unknown]
  - Catheter site haemorrhage [Unknown]
  - Unevaluable event [Not Recovered/Not Resolved]
  - Scar [Unknown]
